FAERS Safety Report 24262712 (Version 1)
Quarter: 2024Q3

REPORT INFORMATION
  Report Type: Spontaneous
  Country: US (occurrence: US)
  Receive Date: 20240829
  Receipt Date: 20240829
  Transmission Date: 20241017
  Serious: Yes (Hospitalization, Other)
  Sender: AZURITY PHARMACEUTICALS
  Company Number: US-AZURITY PHARMACEUTICALS, INC.-AZR202408-000422

PATIENT
  Sex: Female

DRUGS (10)
  1. MYCOPHENOLATE MOFETIL [Suspect]
     Active Substance: MYCOPHENOLATE MOFETIL
     Indication: Necrotising scleritis
     Dosage: UNK
     Route: 065
  2. METHOTREXATE [Suspect]
     Active Substance: METHOTREXATE
     Indication: Necrotising scleritis
     Dosage: 25 MILLIGRAM, WEEKLY
     Route: 065
  3. INFLIXIMAB [Suspect]
     Active Substance: INFLIXIMAB
     Indication: Necrotising scleritis
     Dosage: 5 MILLIGRAM/KILOGRAM EVERY 6 WEEKS
     Route: 065
  4. SOLU-MEDROL [Suspect]
     Active Substance: METHYLPREDNISOLONE SODIUM SUCCINATE
     Indication: Necrotising scleritis
     Dosage: UNK
     Route: 042
  5. PREDNISONE [Suspect]
     Active Substance: PREDNISONE
     Indication: Necrotising scleritis
     Dosage: 1 MILLIGRAM/KILOGRAM, QD
     Route: 065
  6. PREDNISONE [Suspect]
     Active Substance: PREDNISONE
     Dosage: BETWEEN 10-15 MILLIGRAM/KILOGRAM, QD; MAINTENANCE DOSE
     Route: 065
  7. TOCILIZUMAB [Suspect]
     Active Substance: TOCILIZUMAB
     Indication: Necrotising scleritis
     Dosage: UNK
     Route: 065
  8. ACTHAR [Suspect]
     Active Substance: CORTICOTROPIN
     Indication: Necrotising scleritis
     Dosage: UNK
     Route: 065
  9. RITUXIMAB [Suspect]
     Active Substance: RITUXIMAB
     Indication: Granulomatosis with polyangiitis
     Dosage: UNK
     Route: 065
  10. CYCLOPHOSPHAMIDE [Suspect]
     Active Substance: CYCLOPHOSPHAMIDE
     Indication: Granulomatosis with polyangiitis
     Dosage: UNK
     Route: 065

REACTIONS (8)
  - Scleritis [Unknown]
  - Condition aggravated [Unknown]
  - Scleromalacia [Unknown]
  - Cellulitis orbital [Recovered/Resolved]
  - Pneumonia [Unknown]
  - Sinusitis [Unknown]
  - Hyperglycaemia [Unknown]
  - Therapeutic product effect incomplete [Unknown]
